FAERS Safety Report 7158880-5 (Version None)
Quarter: 2010Q4

REPORT INFORMATION
  Report Type: 
  Country: None (occurrence: None)
  Receive Date: 20101201
  Receipt Date: 20101119
  Transmission Date: 20110411
  Serious: Yes (Hospitalization)
  Sender: FDA-Public Use
  Company Number: UTC-002581

PATIENT
  Sex: Male
  Weight: 66.4 kg

DRUGS (1)
  1. TYVASO [Suspect]
     Indication: PORTAL HYPERTENSION
     Dosage: 96 MCG (24 MCG, 4 IN 1 D), INHALATION
     Route: 055
     Dates: start: 20101004, end: 20101101

REACTIONS (3)
  - BALANCE DISORDER [None]
  - FATIGUE [None]
  - FEELING ABNORMAL [None]
